FAERS Safety Report 6609137-X (Version None)
Quarter: 2010Q2

REPORT INFORMATION
  Report Type: 
  Country: None (occurrence: None)
  Receive Date: 20100226
  Receipt Date: 20100226
  Transmission Date: 20101027
  Serious: Yes (Other)
  Sender: FDA-Public Use
  Company Number: None

PATIENT
  Age: 71 Year
  Sex: Female
  Weight: 61.2356 kg

DRUGS (2)
  1. ZITHROMAX [Suspect]
     Indication: COUGH
     Dosage: 1 TABLET -3 PILLS TOTAL- 1 PER DAY PO
     Route: 048
     Dates: start: 20090820, end: 20090820
  2. ZITHROMAX [Suspect]
     Indication: UNEVALUABLE EVENT
     Dosage: 1 TABLET -3 PILLS TOTAL- 1 PER DAY PO
     Route: 048
     Dates: start: 20090820, end: 20090820

REACTIONS (3)
  - ABDOMINAL DISCOMFORT [None]
  - DIARRHOEA [None]
  - HAEMATOCHEZIA [None]
